FAERS Safety Report 4339457-3 (Version None)
Quarter: 2004Q2

REPORT INFORMATION
  Report Type: 
  Country: None (occurrence: None)
  Receive Date: 20040412
  Receipt Date: 20040405
  Transmission Date: 20050107
  Serious: Yes (Other)
  Sender: FDA-Public Use
  Company Number: 2004-04-0142

PATIENT
  Age: 59 Year
  Sex: Male

DRUGS (7)
  1. INTRON A [Suspect]
     Indication: MALIGNANT MELANOMA
     Dosage: 3 MIU TIW SUBCUTANEOUS
     Route: 058
     Dates: start: 20020901
  2. METHYLPREDNISOLONE [Concomitant]
  3. PRAVIDEL TABLETS [Concomitant]
  4. AMLODIPINE TABLETS [Concomitant]
  5. FERROUS SULPHATE TABLETS [Concomitant]
  6. BISOPROLOL FUMARATE [Concomitant]
  7. ALFUZOSIN HYDROCHLORIDE TABLETS [Concomitant]

REACTIONS (1)
  - INJECTION SITE NECROSIS [None]
